FAERS Safety Report 8636276 (Version 3)
Quarter: 2012Q4

REPORT INFORMATION
  Report Type: Report from Study
  Country: PT (occurrence: PT)
  Receive Date: 20120626
  Receipt Date: 20120828
  Transmission Date: 20130627
  Serious: Yes (Other)
  Sender: FDA-Public Use
  Company Number: PT-ROCHE-1080964

PATIENT
  Age: 61 Year
  Sex: Male

DRUGS (3)
  1. XELODA [Suspect]
     Indication: GASTROOESOPHAGEAL CANCER
  2. EPIRUBICIN [Concomitant]
     Indication: GASTROOESOPHAGEAL CANCER
  3. OXALIPLATIN [Concomitant]
     Indication: GASTROOESOPHAGEAL CANCER

REACTIONS (1)
  - Disease progression [Unknown]
